FAERS Safety Report 11208914 (Version 1)
Quarter: 2015Q2

REPORT INFORMATION
  Report Type: Spontaneous
  Country: US (occurrence: US)
  Receive Date: 20150622
  Receipt Date: 20150622
  Transmission Date: 20150821
  Serious: Yes (Hospitalization)
  Sender: FDA-Public Use
  Company Number: US-BAYER-2015-362048

PATIENT

DRUGS (1)
  1. ULTRAVIST [Suspect]
     Active Substance: IOPROMIDE
     Dosage: 39 ML, ONCE
     Route: 042
     Dates: start: 20150612, end: 20150612

REACTIONS (2)
  - Off label use [None]
  - Accidental overdose [None]

NARRATIVE: CASE EVENT DATE: 20150612
